FAERS Safety Report 25902347 (Version 1)
Quarter: 2025Q4

REPORT INFORMATION
  Report Type: Spontaneous
  Country: CL (occurrence: CL)
  Receive Date: 20251009
  Receipt Date: 20251009
  Transmission Date: 20260118
  Serious: Yes (Other)
  Sender: PRECISION DOSE, INC.
  Company Number: CL-PRECISION DOSE, INC.-2025PRD00012

PATIENT
  Age: 34 Year
  Sex: Female

DRUGS (1)
  1. DOXYCYCLINE [Suspect]
     Active Substance: DOXYCYCLINE
     Indication: Rosacea
     Dosage: 100 MG, 1X/DAY

REACTIONS (1)
  - Oesophageal ulcer [Recovered/Resolved]
